FAERS Safety Report 16357890 (Version 2)
Quarter: 2019Q2

REPORT INFORMATION
  Report Type: Spontaneous
  Country: US (occurrence: US)
  Receive Date: 20190527
  Receipt Date: 20190607
  Transmission Date: 20190711
  Serious: Yes (Hospitalization, Other)
  Sender: FDA-Public Use
  Company Number: US-HORIZON-DUE-0317-2019

PATIENT
  Age: 68 Year
  Sex: Male

DRUGS (2)
  1. DUEXIS [Suspect]
     Active Substance: FAMOTIDINE\IBUPROFEN
     Indication: OSTEOARTHRITIS
     Dosage: 2 TIMES A DAY AND AS NEEDED
  2. DILAUDID [Concomitant]
     Active Substance: HYDROMORPHONE HYDROCHLORIDE

REACTIONS (7)
  - Femur fracture [Recovering/Resolving]
  - Fall [Unknown]
  - Hip surgery [Unknown]
  - Therapy cessation [Unknown]
  - Inability to afford medication [Unknown]
  - Intentional product misuse [Unknown]
  - Fracture treatment [Recovering/Resolving]

NARRATIVE: CASE EVENT DATE: 20190105
